FAERS Safety Report 14742952 (Version 1)
Quarter: 2018Q2

REPORT INFORMATION
  Report Type: Report from Study
  Country: US (occurrence: US)
  Receive Date: 20180410
  Receipt Date: 20180410
  Transmission Date: 20180711
  Serious: Yes (Hospitalization)
  Sender: FDA-Public Use
  Company Number: US-BIOGEN-2018BV000184

PATIENT
  Age: 26 Year
  Sex: Female
  Weight: 103.41 kg

DRUGS (4)
  1. ALPROLIX [Suspect]
     Active Substance: EFTRENONACOG ALFA
     Route: 042
     Dates: start: 20180406
  2. ALPROLIX [Suspect]
     Active Substance: EFTRENONACOG ALFA
     Route: 042
     Dates: end: 20180405
  3. ALPROLIX [Suspect]
     Active Substance: EFTRENONACOG ALFA
     Indication: SURGERY
     Dosage: TWICE DURING LABOR
     Route: 042
     Dates: end: 20180328
  4. ALPROLIX [Suspect]
     Active Substance: EFTRENONACOG ALFA
     Indication: FACTOR IX DEFICIENCY
     Dosage: 1 DOSE PRIOR TO LABOR
     Route: 042
     Dates: start: 20180327

REACTIONS (2)
  - Maternal exposure during pregnancy [Recovered/Resolved]
  - Laceration [Recovered/Resolved]

NARRATIVE: CASE EVENT DATE: 20180327
